FAERS Safety Report 7061577-3 (Version None)
Quarter: 2010Q4

REPORT INFORMATION
  Report Type: 
  Country: None (occurrence: None)
  Receive Date: 20101026
  Receipt Date: 20100329
  Transmission Date: 20110411
  Serious: No
  Sender: FDA-Public Use
  Company Number: US-ABBOTT-10P-163-0636311-00

PATIENT
  Sex: Female
  Weight: 72.64 kg

DRUGS (4)
  1. LUPRON DEPOT [Suspect]
     Indication: UTERINE LEIOMYOMA
     Route: 030
     Dates: start: 20090501, end: 20090601
  2. LUPRON DEPOT [Suspect]
     Indication: MENORRHAGIA
  3. WELLBUTRIN [Concomitant]
     Indication: ANXIETY
     Dosage: LOW DOSE, UNKNOWN
  4. WELLBUTRIN [Concomitant]
     Indication: DEPRESSION

REACTIONS (3)
  - ABASIA [None]
  - ARTHRALGIA [None]
  - SENSORY DISTURBANCE [None]
